FAERS Safety Report 5230783-2 (Version None)
Quarter: 2007Q1

REPORT INFORMATION
  Report Type: 
  Country: None (occurrence: None)
  Receive Date: 20070202
  Receipt Date: 20070122
  Transmission Date: 20070707
  Serious: Yes (Hospitalization)
  Sender: FDA-Public Use
  Company Number: 235365

PATIENT
  Age: 49 Year
  Sex: Male

DRUGS (2)
  1. RAPTIVA [Suspect]
     Indication: PSORIASIS
     Dosage: 1.3 ML, 1 WEEK, SUBCUTANEOUS
     Route: 058
     Dates: start: 20050426
  2. ALLOPURINOL [Concomitant]

REACTIONS (3)
  - ARTHRITIS [None]
  - FOOT FRACTURE [None]
  - PATHOLOGICAL FRACTURE [None]
